FAERS Safety Report 9010485 (Version 2)
Quarter: 2013Q1

REPORT INFORMATION
  Report Type: Spontaneous
  Country: US (occurrence: US)
  Receive Date: 20130109
  Receipt Date: 20130225
  Transmission Date: 20140127
  Serious: Yes (Hospitalization)
  Sender: FDA-Public Use
  Company Number: US-INCYTE CORPORATION-2013IN000030

PATIENT
  Age: 51 Year
  Sex: Female
  Weight: 89.3 kg

DRUGS (13)
  1. JAKAFI [Suspect]
     Indication: MYELOFIBROSIS
     Dosage: 20 MG, BID
     Dates: start: 20120217
  2. JAKAFI [Suspect]
     Dosage: 5 MG, BID
     Dates: start: 2012, end: 2012
  3. JAKAFI [Suspect]
     Dosage: 10 MG, BID
     Dates: start: 2012, end: 20121121
  4. ATENOLOL [Concomitant]
     Dosage: 50 MG, BID
  5. CITALOPRAM [Concomitant]
     Dosage: 20 G, QD
  6. HYDROCODONE/APAP [Concomitant]
     Dosage: 5-500 Q6 HRS PRN
  7. METFORMIN [Concomitant]
     Dosage: 800 MG, BID
  8. OXYCONTIN [Concomitant]
     Dosage: 20 MG, UNK
  9. ZOLPIDEM [Concomitant]
     Dosage: 5 MG, QD
  10. PROCHLORPERAZINE [Concomitant]
     Dosage: 10 MG, PRN
  11. ASPIRIN [Concomitant]
     Dosage: 81 MG, QD
  12. TRIAMTERENE-HCTZ [Concomitant]
     Dosage: 37.5-25 MG X 1
  13. URSODIOL [Concomitant]
     Dosage: 300 MG, TID

REACTIONS (6)
  - Stem cell transplant [Unknown]
  - Thrombocytopenia [Unknown]
  - Bone pain [Unknown]
  - Myalgia [Unknown]
  - Abdominal discomfort [Unknown]
  - Splenomegaly [Unknown]
